FAERS Safety Report 16481025 (Version 1)
Quarter: 2019Q2

REPORT INFORMATION
  Report Type: Spontaneous
  Country: FR (occurrence: FR)
  Receive Date: 20190626
  Receipt Date: 20190626
  Transmission Date: 20190711
  Serious: Yes (Hospitalization)
  Sender: FDA-Public Use
  Company Number: FR-SHIRE-FR201920343

PATIENT

DRUGS (1)
  1. ELAPRASE [Suspect]
     Active Substance: IDURSULFASE
     Indication: PRODUCT USED FOR UNKNOWN INDICATION
     Dosage: UNK
     Route: 065

REACTIONS (7)
  - Infusion related reaction [Unknown]
  - Scoliosis [Unknown]
  - Incorrect product administration duration [Unknown]
  - Chills [Unknown]
  - Cyanosis [Unknown]
  - Incorrect drug administration rate [Unknown]
  - Pallor [Unknown]
